FAERS Safety Report 23197201 (Version 2)
Quarter: 2023Q4

REPORT INFORMATION
  Report Type: Spontaneous
  Country: US (occurrence: US)
  Receive Date: 20231117
  Receipt Date: 20231121
  Transmission Date: 20240109
  Serious: Yes (Hospitalization)
  Sender: FDA-Public Use
  Company Number: US-ANIPHARMA-2023-US-033766

PATIENT
  Sex: Female

DRUGS (1)
  1. VANCOMYCIN HYDROCHLORIDE [Suspect]
     Active Substance: VANCOMYCIN HYDROCHLORIDE
     Indication: Clostridium difficile colitis
     Dosage: DOSE UNKNOWN, 4 TIMES PER DAY FOR 10 DAYS
     Route: 065

REACTIONS (1)
  - Drug ineffective [Recovering/Resolving]
